FAERS Safety Report 23338802 (Version 2)
Quarter: 2024Q4

REPORT INFORMATION
  Report Type: Spontaneous
  Country: JP (occurrence: JP)
  Receive Date: 20231226
  Receipt Date: 20241221
  Transmission Date: 20250115
  Serious: Yes (Other)
  Sender: AMGEN
  Company Number: JP-AMGEN-JPNSP2023190458

PATIENT
  Sex: Female

DRUGS (3)
  1. BLINCYTO [Suspect]
     Active Substance: BLINATUMOMAB
     Indication: B precursor type acute leukaemia
     Dosage: UNK, DRIP INFUSION
     Route: 042
     Dates: start: 20230917, end: 202309
  2. BLINCYTO [Suspect]
     Active Substance: BLINATUMOMAB
     Dosage: UNK, DOSE INCREASE (ON DAY 8 AFTER INITIATION OF BLINCYTO), DRIP INFUSION
     Route: 042
     Dates: start: 20230924, end: 2023
  3. BLINCYTO [Suspect]
     Active Substance: BLINATUMOMAB
     Dosage: CYCLE 2, DRIP INFUSION
     Route: 042
     Dates: start: 2023

REACTIONS (3)
  - Cytokine release syndrome [Recovered/Resolved]
  - Central nervous system leukaemia [Not Recovered/Not Resolved]
  - Off label use [Unknown]

NARRATIVE: CASE EVENT DATE: 20230101
